FAERS Safety Report 5127685-9 (Version None)
Quarter: 2006Q4

REPORT INFORMATION
  Report Type: 
  Country: None (occurrence: None)
  Receive Date: 20061016
  Receipt Date: 20061004
  Transmission Date: 20070319
  Serious: Yes (Hospitalization)
  Sender: FDA-Public Use
  Company Number: PHEH2006US12520

PATIENT
  Age: 34 Year
  Sex: Female
  Weight: 91 kg

DRUGS (1)
  1. ZELNORM [Suspect]
     Indication: CONSTIPATION
     Dosage: THREE 2 MG TABLETS BID
     Route: 048
     Dates: start: 20060509, end: 20060510

REACTIONS (1)
  - COLITIS ISCHAEMIC [None]
